FAERS Safety Report 16016601 (Version 1)
Quarter: 2019Q1

REPORT INFORMATION
  Report Type: Spontaneous
  Country: CN (occurrence: CN)
  Receive Date: 20190228
  Receipt Date: 20190228
  Transmission Date: 20190418
  Serious: Yes (Hospitalization, Other)
  Sender: FDA-Public Use
  Company Number: CN-ROCHE-2272021

PATIENT
  Age: 80 Year
  Sex: Male
  Weight: 70 kg

DRUGS (6)
  1. SODIUM CHLORIDE. [Concomitant]
     Active Substance: SODIUM CHLORIDE
     Route: 065
     Dates: start: 20190112
  2. TYGACIL [Suspect]
     Active Substance: TIGECYCLINE
     Indication: LUNG INFECTION
     Route: 042
     Dates: start: 20190112, end: 20190118
  3. SODIUM CHLORIDE. [Concomitant]
     Active Substance: SODIUM CHLORIDE
     Route: 065
     Dates: start: 20181230
  4. CYMEVENE [Suspect]
     Active Substance: GANCICLOVIR
     Indication: ANTIVIRAL TREATMENT
     Route: 041
     Dates: start: 20190108, end: 20190117
  5. PIPERACILLIN. [Suspect]
     Active Substance: PIPERACILLIN SODIUM
     Indication: LUNG INFECTION
     Route: 042
     Dates: start: 20181230, end: 20190118
  6. SODIUM CHLORIDE. [Concomitant]
     Active Substance: SODIUM CHLORIDE
     Route: 042
     Dates: start: 20190108

REACTIONS (5)
  - Blood urea increased [Unknown]
  - Blood creatinine increased [Unknown]
  - Red blood cell count decreased [Unknown]
  - Platelet count decreased [Recovering/Resolving]
  - Renal impairment [Recovering/Resolving]

NARRATIVE: CASE EVENT DATE: 201901
